FAERS Safety Report 7514442-9 (Version None)
Quarter: 2011Q2

REPORT INFORMATION
  Report Type: 
  Country: None (occurrence: None)
  Receive Date: 20110526
  Receipt Date: 20110526
  Transmission Date: 20111010
  Serious: Yes (Disabling, Other)
  Sender: FDA-Public Use
  Company Number: None

PATIENT
  Sex: Female
  Weight: 50.3493 kg

DRUGS (1)
  1. PREDNISONE [Suspect]
     Dosage: I STARTED TAKING 50MG FOR 2 DAY THEN DECREASE 1/2 MG FOR 2 DAY 50 MG FOR 2 DAY THEN DECREASE EVERY

REACTIONS (2)
  - UNEVALUABLE EVENT [None]
  - DYSPNOEA [None]
